FAERS Safety Report 7309094-7 (Version None)
Quarter: 2011Q1

REPORT INFORMATION
  Report Type: 
  Country: None (occurrence: None)
  Receive Date: 20110223
  Receipt Date: 20110218
  Transmission Date: 20110831
  Serious: Yes (Other)
  Sender: FDA-Public Use
  Company Number: US-ABBOTT-11P-163-0706073-00

PATIENT
  Sex: Female

DRUGS (3)
  1. ATACAND [Concomitant]
     Indication: HYPERTENSION
  2. HUMIRA [Suspect]
     Indication: ANKYLOSING SPONDYLITIS
     Dates: start: 20080101, end: 20090101
  3. HUMIRA [Suspect]
     Dates: start: 20090101

REACTIONS (9)
  - METASTASES TO LYMPH NODES [None]
  - ARTHRALGIA [None]
  - OESTROGEN RECEPTOR ASSAY POSITIVE [None]
  - ADENOCARCINOMA [None]
  - NECK PAIN [None]
  - DRUG INEFFECTIVE [None]
  - AXILLARY MASS [None]
  - PROGESTERONE RECEPTOR ASSAY POSITIVE [None]
  - BREAST CANCER [None]
